FAERS Safety Report 10742748 (Version 2)
Quarter: 2016Q4

REPORT INFORMATION
  Report Type: Spontaneous
  Country: VE (occurrence: VE)
  Receive Date: 20150127
  Receipt Date: 20161013
  Transmission Date: 20170206
  Serious: Yes (Hospitalization, Other)
  Sender: FDA-Public Use
  Company Number: PHHY2015VE009205

PATIENT
  Sex: Male

DRUGS (19)
  1. LEPONEX [Suspect]
     Active Substance: CLOZAPINE
     Dosage: 100 MG, (50 AND 50 MG DOSE)
     Route: 065
  2. LEPONEX [Suspect]
     Active Substance: CLOZAPINE
     Indication: SCHIZOPHRENIA
     Dosage: 25 MG, UNK
     Route: 048
  3. RIPEVIL [Concomitant]
     Indication: PRODUCT USED FOR UNKNOWN INDICATION
     Dosage: UNK
     Route: 065
  4. RIVOTRIL [Concomitant]
     Active Substance: CLONAZEPAM
     Dosage: 1 DF, QD
     Route: 065
     Dates: start: 2012
  5. LEPONEX [Suspect]
     Active Substance: CLOZAPINE
     Dosage: 75 MG, UNK
     Route: 065
  6. APRONAX [Concomitant]
     Active Substance: NAPROXEN SODIUM
     Indication: PRODUCT USED FOR UNKNOWN INDICATION
     Route: 065
  7. LEPONEX [Suspect]
     Active Substance: CLOZAPINE
     Dosage: 200 MG, (100 MG IN THE MORNINGS AND 100 MG IN THE EVENINGS)
     Route: 065
  8. ZYPREXA [Concomitant]
     Active Substance: OLANZAPINE
     Indication: PRODUCT USED FOR UNKNOWN INDICATION
     Dosage: UNK
     Route: 065
  9. DIAZEPAM. [Concomitant]
     Active Substance: DIAZEPAM
     Indication: PRODUCT USED FOR UNKNOWN INDICATION
     Dosage: UNK
     Route: 065
  10. LEPONEX [Suspect]
     Active Substance: CLOZAPINE
     Dosage: 25 MG, (4 DF IN MORNING AND 4 DF IN NIGHT)
     Route: 065
  11. RIDAL [Concomitant]
     Indication: PRODUCT USED FOR UNKNOWN INDICATION
     Dosage: 0.5 DF (2 MG), QD
     Route: 065
     Dates: start: 2012
  12. ORAVIL [Concomitant]
     Indication: PRODUCT USED FOR UNKNOWN INDICATION
     Dosage: 1 DF, QD
     Route: 065
  13. LEPONEX [Suspect]
     Active Substance: CLOZAPINE
     Indication: INTELLECTUAL DISABILITY
     Dosage: 50 MG, QD
     Route: 048
     Dates: start: 2006
  14. LEPONEX [Suspect]
     Active Substance: CLOZAPINE
     Dosage: 200 MG (100 MG IN THE MORNING AND 100 MG IN THE AFTERNOON)
     Route: 048
     Dates: start: 2006
  15. LEPONEX [Suspect]
     Active Substance: CLOZAPINE
     Dosage: 0.25 DF (1/4 TABLET )
     Route: 048
  16. LEPONEX [Suspect]
     Active Substance: CLOZAPINE
     Dosage: 200 MG, (25 MG X04 TABLETS IN THE MORNING AND 04 TABLETS AT NIGHT)
     Route: 048
  17. RIVOTRIL [Concomitant]
     Active Substance: CLONAZEPAM
     Indication: PRODUCT USED FOR UNKNOWN INDICATION
     Dosage: 1 DF, BID (2 MG)
     Route: 065
  18. ALPRAZOLAM. [Concomitant]
     Active Substance: ALPRAZOLAM
     Indication: PRODUCT USED FOR UNKNOWN INDICATION
     Route: 065
  19. CLONAZEPAM. [Concomitant]
     Active Substance: CLONAZEPAM
     Indication: PRODUCT USED FOR UNKNOWN INDICATION
     Route: 065

REACTIONS (10)
  - Aggression [Recovering/Resolving]
  - Intentional self-injury [Unknown]
  - Malaise [Unknown]
  - Wrong technique in product usage process [Unknown]
  - Personality change [Unknown]
  - Restlessness [Unknown]
  - Psychiatric decompensation [Recovered/Resolved]
  - Dysstasia [Unknown]
  - Product use issue [Unknown]
  - Suicide attempt [Recovered/Resolved]

NARRATIVE: CASE EVENT DATE: 2006
